FAERS Safety Report 6750190-0 (Version None)
Quarter: 2010Q2

REPORT INFORMATION
  Report Type: 
  Country: None (occurrence: None)
  Receive Date: 20100601
  Receipt Date: 20100520
  Transmission Date: 20101027
  Serious: Yes (Other)
  Sender: FDA-Public Use
  Company Number: US-PFIZER INC-2010064408

PATIENT
  Sex: Female
  Weight: 84.81 kg

DRUGS (11)
  1. LYRICA [Suspect]
     Indication: PAIN
     Dosage: 150 MG, 2X/DAY
     Route: 048
  2. LYRICA [Suspect]
     Indication: FIBROMYALGIA
  3. LYRICA [Suspect]
     Indication: HEADACHE
  4. LYRICA [Suspect]
     Indication: SPINAL OPERATION
  5. CYMBALTA [Concomitant]
     Dosage: UNK
  6. KLONOPIN [Concomitant]
     Dosage: 2 MG, UNK
  7. SEROQUEL [Concomitant]
     Indication: SLEEP DISORDER
     Dosage: UNK
  8. METHYLFOLATE [Concomitant]
     Dosage: UNK
  9. MILNACIPRAN [Concomitant]
     Dosage: 50 MG, UNK
  10. TRAZODONE [Concomitant]
     Dosage: 50 MG, UNK
  11. POTASSIUM [Concomitant]
     Dosage: UNK

REACTIONS (8)
  - LIP SWELLING [None]
  - MEMORY IMPAIRMENT [None]
  - MOOD ALTERED [None]
  - MUSCLE SPASMS [None]
  - OEDEMA PERIPHERAL [None]
  - PRURITUS [None]
  - RASH MACULAR [None]
  - WEIGHT INCREASED [None]
